FAERS Safety Report 8360358-8 (Version None)
Quarter: 2012Q1

REPORT INFORMATION
  Report Type: 
  Country: None (occurrence: None)
  Receive Date: 20120323
  Receipt Date: 20111104
  Transmission Date: 20120608
  Serious: Yes (Hospitalization)
  Sender: FDA-Public Use
  Company Number: 163-21880-11090591

PATIENT
  Age: 51 Year
  Sex: Female

DRUGS (9)
  1. REVLIMID [Suspect]
     Indication: MULTIPLE MYELOMA
     Dosage: 25 MG, DAILY X 21 DAYS, PO
     Route: 048
     Dates: start: 20110723
  2. ESTRADIOL [Concomitant]
  3. ZEMPLAR [Concomitant]
  4. LYRICA [Concomitant]
  5. VITAMIN D [Concomitant]
  6. AMLODIPINE [Concomitant]
  7. SODIUM BICARBONATE IN PLASTIC CONTAINER [Concomitant]
  8. ASPIRIN [Concomitant]
  9. DEXAMETHASONE [Concomitant]

REACTIONS (3)
  - TREMOR [None]
  - FEELING JITTERY [None]
  - RENAL FAILURE [None]
